FAERS Safety Report 6007940-0 (Version None)
Quarter: 2008Q4

REPORT INFORMATION
  Report Type: 
  Country: None (occurrence: None)
  Receive Date: 20081217
  Receipt Date: 20080616
  Transmission Date: 20090506
  Serious: No
  Sender: FDA-Public Use
  Company Number: US-ASTRAZENECA-2008UW12067

PATIENT
  Age: 47 Year
  Sex: Female
  Weight: 66.2 kg

DRUGS (2)
  1. CRESTOR [Suspect]
     Route: 048
  2. SYNTHROID [Concomitant]

REACTIONS (3)
  - ASTHENIA [None]
  - FEELING ABNORMAL [None]
  - PAIN IN EXTREMITY [None]
